FAERS Safety Report 7258639-4 (Version None)
Quarter: 2011Q1

REPORT INFORMATION
  Report Type: 
  Country: None (occurrence: None)
  Receive Date: 20110129
  Receipt Date: 20100505
  Transmission Date: 20110831
  Serious: No
  Sender: FDA-Public Use
  Company Number: US-ABBOTT-09P-163-0607832-00

PATIENT
  Sex: Female
  Weight: 81.72 kg

DRUGS (3)
  1. HUMIRA [Suspect]
     Indication: PSORIATIC ARTHROPATHY
     Dates: start: 20090501, end: 20091001
  2. HUMIRA [Suspect]
     Dates: start: 20091001
  3. UNKNOWN MEDICATIONS [Concomitant]
     Indication: DIABETES MELLITUS

REACTIONS (3)
  - DEVICE MALFUNCTION [None]
  - INJECTION SITE PAIN [None]
  - DRUG INEFFECTIVE [None]
